FAERS Safety Report 17188515 (Version 1)
Quarter: 2019Q4

REPORT INFORMATION
  Report Type: Spontaneous
  Country: US (occurrence: US)
  Receive Date: 20191222
  Receipt Date: 20191222
  Transmission Date: 20200122
  Serious: No
  Sender: FDA-Public Use
  Company Number: US-ACORDA-ACO_161247_2019

PATIENT
  Sex: Male

DRUGS (3)
  1. RYTARY [Concomitant]
     Active Substance: CARBIDOPA\LEVODOPA
     Indication: PRODUCT USED FOR UNKNOWN INDICATION
     Dosage: 2 DOSAGE FORM, QID
     Route: 065
  2. INBRIJA [Suspect]
     Active Substance: LEVODOPA
     Indication: PARKINSON^S DISEASE
     Dosage: 84 MILLIGRAMS (2 CAPSULES OF 42MG, UP TO FIVE TIMES A DAY PRN
     Dates: start: 20190614, end: 201906
  3. XADAGO [Concomitant]
     Active Substance: SAFINAMIDE MESYLATE
     Indication: PRODUCT USED FOR UNKNOWN INDICATION
     Dosage: 100 MILLIGRAM, QD
     Route: 065

REACTIONS (2)
  - Hallucination [Recovered/Resolved]
  - Tremor [Recovered/Resolved]

NARRATIVE: CASE EVENT DATE: 20190615
